FAERS Safety Report 18896379 (Version 3)
Quarter: 2021Q2

REPORT INFORMATION
  Report Type: Spontaneous
  Country: CA (occurrence: CA)
  Receive Date: 20210216
  Receipt Date: 20210624
  Transmission Date: 20210717
  Serious: Yes (Other)
  Sender: FDA-Public Use
  Company Number: CA-CELLTRION INC.-2020CA024497

PATIENT

DRUGS (8)
  1. INFLECTRA [Suspect]
     Active Substance: INFLIXIMAB-DYYB
     Dosage: 5 MG/KG 0, 2, 6, THEN EVERY 8 WEEKS
     Route: 042
     Dates: start: 20210407
  2. INFLECTRA [Suspect]
     Active Substance: INFLIXIMAB-DYYB
     Dosage: 5 MG/KG,0, 2, 6, THEN EVERY 8 WEEKS
     Route: 042
     Dates: start: 20210602
  3. PREDNISONE. [Concomitant]
     Active Substance: PREDNISONE
     Dosage: 40 MG, 1X/DAY (40 MG OD FOR 5 DAYS, TAPERING BY 5 MG EVERY 7 DAYS)
     Route: 048
     Dates: start: 20200713
  4. INFLECTRA [Suspect]
     Active Substance: INFLIXIMAB-DYYB
     Dosage: 5 MG/KG 0, 2, 6, THEN EVERY 8 WEEKS
     Route: 042
     Dates: start: 20201019
  5. INFLECTRA [Suspect]
     Active Substance: INFLIXIMAB-DYYB
     Indication: CROHN^S DISEASE
     Dosage: 5 MG/KG 0, 2, 6, THEN EVERY 8 WEEKS
     Route: 042
     Dates: start: 20200712
  6. INFLECTRA [Suspect]
     Active Substance: INFLIXIMAB-DYYB
     Dosage: 5 MG/KG 0, 2, 6, THEN EVERY 8 WEEKS
     Route: 042
     Dates: start: 20200727
  7. INFLECTRA [Suspect]
     Active Substance: INFLIXIMAB-DYYB
     Dosage: 5 MG/KG 0, 2, 6, THEN EVERY 8 WEEKS
     Route: 042
     Dates: start: 20201214
  8. INFLECTRA [Suspect]
     Active Substance: INFLIXIMAB-DYYB
     Dosage: 5 MG/KG 0, 2, 6, THEN EVERY 8 WEEKS
     Route: 042
     Dates: start: 20200824

REACTIONS (6)
  - Hernia [Unknown]
  - Pharyngitis [Recovered/Resolved]
  - Drug level below therapeutic [Unknown]
  - Arthralgia [Unknown]
  - White blood cell count increased [Unknown]
  - Streptococcal infection [Recovered/Resolved]

NARRATIVE: CASE EVENT DATE: 20200713
